FAERS Safety Report 26113311 (Version 1)
Quarter: 2025Q4

REPORT INFORMATION
  Report Type: Report from Study
  Country: US (occurrence: US)
  Receive Date: 20251202
  Receipt Date: 20251202
  Transmission Date: 20260117
  Serious: Yes (Other)
  Sender: VERTEX
  Company Number: US-VERTEX PHARMACEUTICALS-2021-013965

PATIENT
  Age: 16 Year
  Sex: Male

DRUGS (9)
  1. TRIKAFTA [Suspect]
     Active Substance: ELEXACAFTOR\IVACAFTOR\TEZACAFTOR
     Indication: Cystic fibrosis
     Dosage: 2 ORANGE TABLETS IN MORNING AND 1 BLUE TABLET IN EVENING
     Dates: start: 202108, end: 2025
  2. TRIKAFTA [Suspect]
     Active Substance: ELEXACAFTOR\IVACAFTOR\TEZACAFTOR
     Dosage: 2 ORANGE TABS AM ONLY, NOT TAKING EVENING DOSE
  3. TRIKAFTA [Suspect]
     Active Substance: ELEXACAFTOR\IVACAFTOR\TEZACAFTOR
     Dosage: ONE ORANGE TABS AM ON MONDAY, WEDNESDAY AND FRIDAY
     Dates: start: 20251029, end: 2025
  4. VENTOLIN HFA [Concomitant]
     Active Substance: ALBUTEROL SULFATE
  5. SODIUM CHLORIDE [Concomitant]
     Active Substance: SODIUM CHLORIDE
  6. URSODIOL [Concomitant]
     Active Substance: URSODIOL
  7. ZENPEP [Concomitant]
     Active Substance: PANCRELIPASE AMYLASE\PANCRELIPASE LIPASE\PANCRELIPASE PROTEASE
  8. VITAMIN D3 [Concomitant]
     Active Substance: CHOLECALCIFEROL
  9. MINERALS\VITAMINS [Concomitant]
     Active Substance: MINERALS\VITAMINS

REACTIONS (5)
  - Hepatic enzyme increased [Recovering/Resolving]
  - Behaviour disorder [Unknown]
  - Hypersomnia [Unknown]
  - Hepatic pain [Not Recovered/Not Resolved]
  - Cholangitis [Unknown]

NARRATIVE: CASE EVENT DATE: 20251029
